FAERS Safety Report 10654671 (Version 3)
Quarter: 2015Q1

REPORT INFORMATION
  Report Type: Report from Study
  Country: CA (occurrence: CA)
  Receive Date: 20141216
  Receipt Date: 20150212
  Transmission Date: 20150720
  Serious: Yes (Hospitalization)
  Sender: FDA-Public Use
  Company Number: CA-JNJFOC-20141203507

PATIENT
  Age: 62 Year
  Sex: Male
  Weight: 124.74 kg

DRUGS (1)
  1. USTEKINUMAB [Suspect]
     Active Substance: USTEKINUMAB
     Indication: PSORIASIS
     Route: 058
     Dates: start: 200602

REACTIONS (1)
  - Prostate cancer stage II [Recovered/Resolved with Sequelae]

NARRATIVE: CASE EVENT DATE: 201404
